FAERS Safety Report 21083813 (Version 1)
Quarter: 2022Q3

REPORT INFORMATION
  Report Type: Spontaneous
  Country: None (occurrence: TW)
  Receive Date: 20220714
  Receipt Date: 20220714
  Transmission Date: 20221027
  Serious: Yes (Hospitalization)
  Sender: FDA-Public Use
  Company Number: TW-Nostrum Laboratories, Inc.-2130887

PATIENT
  Age: 1 Month
  Sex: Female

DRUGS (1)
  1. BUTALBITAL, ASPIRIN, AND CAFFEINE [Suspect]
     Active Substance: ASPIRIN\BUTALBITAL\CAFFEINE
     Indication: Protein S deficiency
     Route: 048

REACTIONS (2)
  - Periventricular leukomalacia [Recovered/Resolved]
  - Seizure [Recovered/Resolved]
